FAERS Safety Report 20953563 (Version 3)
Quarter: 2022Q3

REPORT INFORMATION
  Report Type: Spontaneous
  Country: CH (occurrence: CH)
  Receive Date: 20220613
  Receipt Date: 20220711
  Transmission Date: 20221027
  Serious: No
  Sender: FDA-Public Use
  Company Number: CH-BIOGEN-2022BI01129862

PATIENT
  Age: 58 Year
  Sex: Male
  Weight: 81.2 kg

DRUGS (11)
  1. ADUCANUMAB [Suspect]
     Active Substance: ADUCANUMAB
     Indication: Dementia Alzheimer^s type
     Dosage: INFUSION 1
     Route: 050
     Dates: start: 20220118
  2. ADUCANUMAB [Suspect]
     Active Substance: ADUCANUMAB
     Dosage: INFUSION 2
     Route: 050
     Dates: start: 2022
  3. ADUCANUMAB [Suspect]
     Active Substance: ADUCANUMAB
     Dosage: INFUSION 3
     Route: 050
     Dates: start: 20220301
  4. ADUCANUMAB [Suspect]
     Active Substance: ADUCANUMAB
     Dosage: INFUSION 4
     Route: 050
     Dates: start: 2022
  5. ADUCANUMAB [Suspect]
     Active Substance: ADUCANUMAB
     Dosage: INFUSION 5
     Route: 050
     Dates: start: 2022
  6. ADUCANUMAB [Suspect]
     Active Substance: ADUCANUMAB
     Dosage: INFUSION 6
     Route: 050
     Dates: start: 20220516
  7. ADUCANUMAB [Suspect]
     Active Substance: ADUCANUMAB
     Dosage: INFUSION 6
     Route: 050
     Dates: start: 20220516
  8. ADUCANUMAB [Suspect]
     Active Substance: ADUCANUMAB
     Dosage: MAINTENANCE DOSE
     Route: 050
     Dates: start: 20220607
  9. ADUCANUMAB [Suspect]
     Active Substance: ADUCANUMAB
     Dosage: MAINTENANCE DOSE
     Route: 050
     Dates: start: 20220607
  10. EXELON [Concomitant]
     Active Substance: RIVASTIGMINE TARTRATE
     Indication: Product used for unknown indication
     Route: 050
  11. GINKGO [Concomitant]
     Active Substance: GINKGO
     Indication: Product used for unknown indication
     Dosage: ONCE
     Route: 050

REACTIONS (1)
  - Amyloid related imaging abnormality-oedema/effusion [Not Recovered/Not Resolved]

NARRATIVE: CASE EVENT DATE: 20220530
